FAERS Safety Report 5260936-9 (Version None)
Quarter: 2007Q1

REPORT INFORMATION
  Report Type: 
  Country: None (occurrence: None)
  Receive Date: 20070309
  Receipt Date: 20070302
  Transmission Date: 20070707
  Serious: Yes (Other)
  Sender: FDA-Public Use
  Company Number: US-SHR-US-2006-023810

PATIENT
  Age: 32 Year
  Sex: Female
  Weight: 61.2 kg

DRUGS (3)
  1. MIRENA [Suspect]
     Indication: CONTRACEPTION
     Dosage: 20 A?G/DAY, CONT
     Route: 015
     Dates: start: 20060705
  2. LEXAPRO [Concomitant]
     Indication: ANXIETY
     Dosage: 10 MG, 1X/DAY
     Route: 048
  3. VITAMINS NOS [Concomitant]
     Dosage: UNK, UNK

REACTIONS (5)
  - BLOOD BILIRUBIN INCREASED [None]
  - OCULAR ICTERUS [None]
  - PROCEDURAL DIZZINESS [None]
  - PROCEDURAL NAUSEA [None]
  - PROCEDURAL VOMITING [None]
